FAERS Safety Report 5394960-2 (Version None)
Quarter: 2007Q3

REPORT INFORMATION
  Report Type: 
  Country: None (occurrence: None)
  Receive Date: 20070724
  Receipt Date: 20070717
  Transmission Date: 20080115
  Serious: Yes (Hospitalization, Other)
  Sender: FDA-Public Use
  Company Number: PHEH2007US10013

PATIENT
  Age: 24 Year
  Sex: Male

DRUGS (2)
  1. TEGRETOL-XR [Suspect]
     Dosage: 400 MG, BID
     Route: 048
  2. HERBAL EXTRACTS NOS [Suspect]

REACTIONS (8)
  - ANTICONVULSANT DRUG LEVEL DECREASED [None]
  - BLOOD POTASSIUM DECREASED [None]
  - CONVULSION [None]
  - CONVULSIVE THRESHOLD LOWERED [None]
  - DRUG INTERACTION [None]
  - DRUG LEVEL BELOW THERAPEUTIC [None]
  - STATUS EPILEPTICUS [None]
  - UNRESPONSIVE TO STIMULI [None]
